FAERS Safety Report 4526009-5 (Version None)
Quarter: 2004Q4

REPORT INFORMATION
  Report Type: 
  Country: None (occurrence: None)
  Receive Date: 20041129
  Receipt Date: 20041025
  Transmission Date: 20050328
  Serious: Yes (Hospitalization, Disabling)
  Sender: FDA-Public Use
  Company Number: USA040978772

PATIENT
  Age: 94 Year
  Sex: Female

DRUGS (5)
  1. ZYPREXA [Suspect]
     Indication: NEUROSIS
     Dosage: 5 MG
     Dates: start: 20030701
  2. NEURONTIN [Concomitant]
  3. ARICEPT [Concomitant]
  4. VIOXX [Concomitant]
  5. ZOLOFT [Concomitant]

REACTIONS (6)
  - APHASIA [None]
  - BLOOD PRESSURE FLUCTUATION [None]
  - BLOOD PRESSURE INCREASED [None]
  - DYSPHAGIA [None]
  - INSOMNIA [None]
  - MENTAL DISORDER [None]
